FAERS Safety Report 24237721 (Version 1)
Quarter: 2024Q3

REPORT INFORMATION
  Report Type: Spontaneous
  Country: GB (occurrence: GB)
  Receive Date: 20240822
  Receipt Date: 20240822
  Transmission Date: 20241017
  Serious: Yes (Life-Threatening, Hospitalization, Disabling, Congenital Anomaly, Other)
  Sender: INSUD PHARMA
  Company Number: None

PATIENT
  Age: 28 Year
  Sex: Female

DRUGS (2)
  1. LEVONORGESTREL [Suspect]
     Active Substance: LEVONORGESTREL
     Indication: Adverse drug reaction
     Dosage: 1500MCG DOUBLE DOSE
     Dates: start: 20240713, end: 20240713
  2. VENLAFAXINE [Concomitant]
     Active Substance: VENLAFAXINE HYDROCHLORIDE
     Indication: Depression
     Dates: start: 20150901

REACTIONS (2)
  - Maternal exposure during pregnancy [Unknown]
  - Ectopic pregnancy [Recovered/Resolved with Sequelae]

NARRATIVE: CASE EVENT DATE: 20240713
